FAERS Safety Report 7464877-8 (Version None)
Quarter: 2011Q2

REPORT INFORMATION
  Report Type: 
  Country: None (occurrence: None)
  Receive Date: 20110509
  Receipt Date: 20110331
  Transmission Date: 20111010
  Serious: Yes (Hospitalization, Other)
  Sender: FDA-Public Use
  Company Number: US-BAYER-201018990NA

PATIENT
  Age: 39 Year
  Sex: Female
  Weight: 57 kg

DRUGS (6)
  1. PRECARE [Concomitant]
     Dosage: UNK
     Dates: start: 20010101
  2. DESOGEN [Concomitant]
     Dosage: UNK
     Dates: start: 20010101
  3. ORTHO MICRONOR-28 [Concomitant]
     Dosage: UNK
     Dates: start: 20010101
  4. YAZ [Suspect]
     Indication: PRODUCT USED FOR UNKNOWN INDICATION
     Dosage: UNK
     Route: 048
     Dates: start: 20061101, end: 20080301
  5. MULTI-VITAMIN [Concomitant]
     Dosage: UNK UNK, QD
  6. CALCIUM SUPPLEMENT [Concomitant]

REACTIONS (2)
  - CEREBROVASCULAR ACCIDENT [None]
  - BRAIN INJURY [None]
